FAERS Safety Report 25226120 (Version 1)
Quarter: 2025Q2

REPORT INFORMATION
  Report Type: Spontaneous
  Country: FR (occurrence: FR)
  Receive Date: 20250422
  Receipt Date: 20250422
  Transmission Date: 20250716
  Serious: No
  Sender: BIOCODEX
  Company Number: FR-BIOCODEX2-2003000131

PATIENT
  Sex: Male

DRUGS (4)
  1. STIRIPENTOL [Suspect]
     Active Substance: STIRIPENTOL
     Indication: Product used for unknown indication
     Dosage: 500MG IN THE MORNING AND 1000MG IN THE EVENING.
     Route: 065
  2. VALPROATE SODIUM [Concomitant]
     Active Substance: VALPROATE SODIUM
     Indication: Product used for unknown indication
     Dosage: 300MG IN THE MORNING AND IN THE EVENING.
     Route: 065
  3. CLOBAZAM [Concomitant]
     Active Substance: CLOBAZAM
     Indication: Product used for unknown indication
     Dosage: 5MG IN THE MORNING, AT NOON AND IN THE EVENING.
     Route: 065
  4. RIVOTRIL [Concomitant]
     Active Substance: CLONAZEPAM
     Indication: Product used for unknown indication
     Dosage: 2 DROPS AT MIDDAY AND 5 AT MIDNIGHT.
     Route: 065

REACTIONS (1)
  - Seizure [Unknown]
